FAERS Safety Report 6320287-8 (Version None)
Quarter: 2009Q3

REPORT INFORMATION
  Report Type: 
  Country: None (occurrence: None)
  Receive Date: 20090822
  Receipt Date: 20081029
  Transmission Date: 20100115
  Serious: No
  Sender: FDA-Public Use
  Company Number: US-ABBOTT-08P-163-0484718-00

PATIENT
  Sex: Male

DRUGS (17)
  1. NIASPAN [Suspect]
     Indication: HIGH DENSITY LIPOPROTEIN DECREASED
     Dosage: AT BEDTIME
     Dates: start: 20080701
  2. NIASPAN [Suspect]
     Indication: LOW DENSITY LIPOPROTEIN INCREASED
  3. NIASPAN [Suspect]
     Indication: BLOOD TRIGLYCERIDES INCREASED
  4. WARFARIN SODIUM [Concomitant]
     Indication: DRUG USE FOR UNKNOWN INDICATION
  5. ASPIRIN [Concomitant]
     Indication: DRUG USE FOR UNKNOWN INDICATION
  6. CLOPIDOGREL [Concomitant]
     Indication: DRUG USE FOR UNKNOWN INDICATION
  7. SIMVASTATIN [Concomitant]
     Indication: DRUG USE FOR UNKNOWN INDICATION
  8. PRAMIPEXOLE DIHYDROCHLORIDE [Concomitant]
     Indication: DRUG USE FOR UNKNOWN INDICATION
  9. ERGOCALCIFEROL [Concomitant]
     Indication: DRUG USE FOR UNKNOWN INDICATION
  10. SOTALOL HCL [Concomitant]
     Indication: DRUG USE FOR UNKNOWN INDICATION
  11. CARVEDILOL [Concomitant]
     Indication: DRUG USE FOR UNKNOWN INDICATION
  12. LOVAZA [Concomitant]
     Indication: DRUG USE FOR UNKNOWN INDICATION
  13. LISINOPRIL [Concomitant]
     Indication: DRUG USE FOR UNKNOWN INDICATION
  14. DIGOXIN [Concomitant]
     Indication: DRUG USE FOR UNKNOWN INDICATION
  15. FUROSEMIDE [Concomitant]
     Indication: DRUG USE FOR UNKNOWN INDICATION
  16. FOLIC ACID [Concomitant]
     Indication: DRUG USE FOR UNKNOWN INDICATION
  17. MULTI-VITAMIN [Concomitant]
     Indication: DRUG USE FOR UNKNOWN INDICATION

REACTIONS (1)
  - FLUSHING [None]
